FAERS Safety Report 21452570 (Version 1)
Quarter: 2022Q4

REPORT INFORMATION
  Report Type: Spontaneous
  Country: CZ (occurrence: CZ)
  Receive Date: 20221013
  Receipt Date: 20221013
  Transmission Date: 20230113
  Serious: Yes (Life-Threatening, Hospitalization, Other)
  Sender: FDA-Public Use
  Company Number: None

PATIENT
  Age: 69 Year
  Sex: Male
  Weight: 81 kg

DRUGS (2)
  1. YERVOY [Suspect]
     Active Substance: IPILIMUMAB
     Indication: Renal cancer
     Dosage: 1MG/KG A 21 DAYS. IN TOTAL 3 CYCLES
     Route: 042
     Dates: start: 20220629, end: 20220810
  2. OPDIVO [Suspect]
     Active Substance: NIVOLUMAB
     Indication: Renal cancer
     Dosage: 3MG/KG A 21 DAYS. IN TOTAL 3 CYCLES
     Route: 042
     Dates: start: 20220629, end: 20220810

REACTIONS (2)
  - Autoimmune lung disease [Recovering/Resolving]
  - Prescribed overdose [Unknown]

NARRATIVE: CASE EVENT DATE: 20220922
